FAERS Safety Report 22378034 (Version 2)
Quarter: 2024Q3

REPORT INFORMATION
  Report Type: Spontaneous
  Country: ES (occurrence: ES)
  Receive Date: 20230529
  Receipt Date: 20240822
  Transmission Date: 20241017
  Serious: Yes (Hospitalization)
  Sender: KYOWA
  Company Number: ES-KYOWAKIRIN-2023BKK007737

PATIENT

DRUGS (1)
  1. POTELIGEO [Suspect]
     Active Substance: MOGAMULIZUMAB-KPKC
     Indication: Cutaneous T-cell lymphoma stage IV
     Dosage: UNK
     Route: 042
     Dates: start: 20210611, end: 20210908

REACTIONS (7)
  - Condition aggravated [Unknown]
  - Skin exfoliation [Unknown]
  - Skin plaque [Unknown]
  - Lymphadenopathy [Unknown]
  - Back pain [Unknown]
  - Muscular weakness [Unknown]
  - Pyrexia [Unknown]
